FAERS Safety Report 7888472-1 (Version None)
Quarter: 2011Q4

REPORT INFORMATION
  Report Type: 
  Country: None (occurrence: None)
  Receive Date: 20111103
  Receipt Date: 20111026
  Transmission Date: 20120403
  Serious: Yes (Other)
  Sender: FDA-Public Use
  Company Number: PHEH2011US07923

PATIENT
  Sex: Male

DRUGS (1)
  1. GLEEVEC [Suspect]
     Indication: GASTRIC CANCER
     Dosage: 400 MG, QD
     Dates: end: 20110801

REACTIONS (5)
  - DIARRHOEA [None]
  - NAUSEA [None]
  - DYSPHAGIA [None]
  - VOMITING [None]
  - TERMINAL STATE [None]
